FAERS Safety Report 8874439 (Version 1)
Quarter: 2012Q4

REPORT INFORMATION
  Report Type: 
  Country: US (occurrence: US)
  Receive Date: 20121023
  Receipt Date: 20121023
  Transmission Date: 20130627
  Serious: No
  Sender: FDA-Public Use
  Company Number: US-VERTEX PHARMACEUTICAL INC.-2012-023309

PATIENT
  Sex: Male

DRUGS (3)
  1. VX-950 [Suspect]
     Indication: HEPATITIS C
     Dosage: 750 mg, tid
     Route: 048
     Dates: start: 20120913
  2. PEG-INTRON [Suspect]
     Indication: HEPATITIS C
     Dosage: 96 ?g, weekly
     Route: 058
     Dates: start: 20120913
  3. RIBASPHERE [Suspect]
     Indication: HEPATITIS C
     Dosage: 1000 mg daily
     Route: 048
     Dates: start: 20120913

REACTIONS (2)
  - Decreased appetite [Unknown]
  - Nausea [Unknown]
